FAERS Safety Report 13718695 (Version 2)
Quarter: 2017Q3

REPORT INFORMATION
  Report Type: Spontaneous
  Country: AT (occurrence: AT)
  Receive Date: 20170705
  Receipt Date: 20170804
  Transmission Date: 20171127
  Serious: Yes (Hospitalization)
  Sender: FDA-Public Use
  Company Number: AT-B.I. PHARMACEUTICALS,INC./RIDGEFIELD-2017-BI-036454

PATIENT
  Sex: Female
  Weight: 90 kg

DRUGS (2)
  1. METFORMIN [Concomitant]
     Active Substance: METFORMIN HYDROCHLORIDE
     Indication: PRODUCT USED FOR UNKNOWN INDICATION
     Route: 065
     Dates: end: 201706
  2. SYNJARDY [Suspect]
     Active Substance: EMPAGLIFLOZIN\METFORMIN HYDROCHLORIDE
     Indication: PRODUCT USED FOR UNKNOWN INDICATION
     Dosage: UNIT DOSE: 5/1000 MILLIGRAM; DAILY DOSE: 10/2000 MILLIGRAM
     Route: 065
     Dates: start: 201706

REACTIONS (3)
  - Febrile infection [Recovered/Resolved]
  - Somnolence [Recovered/Resolved]
  - Ketoacidosis [Recovered/Resolved]

NARRATIVE: CASE EVENT DATE: 20170628
